FAERS Safety Report 6221314-9 (Version None)
Quarter: 2009Q2

REPORT INFORMATION
  Report Type: 
  Country: None (occurrence: None)
  Receive Date: 20090610
  Receipt Date: 20090601
  Transmission Date: 20091009
  Serious: Yes (Other)
  Sender: FDA-Public Use
  Company Number: FR-BRISTOL-MYERS SQUIBB COMPANY-14648380

PATIENT
  Age: 38 Year
  Sex: Female

DRUGS (9)
  1. DIDANOSINE [Suspect]
     Indication: HIV INFECTION
     Dates: start: 19980101
  2. STAVUDINE [Suspect]
     Indication: HIV INFECTION
     Dates: start: 19980101
  3. ATAZANAVIR SULFATE [Suspect]
     Indication: HIV INFECTION
     Dates: start: 20040101
  4. LAMIVUDINE [Suspect]
     Indication: HIV INFECTION
     Dosage: TREATED AGAIN IN 2002, JUN-2003 AND 2004
     Dates: start: 19970101
  5. INDINIVIR SULFATE [Suspect]
     Indication: HIV INFECTION
     Dates: start: 19970101
  6. NELFINAVIR [Suspect]
     Indication: HIV INFECTION
     Dosage: TREATED AGAIN IN 2002
     Dates: start: 19980101
  7. ZIDOVUDINE [Suspect]
     Indication: HIV INFECTION
     Dosage: ALSO TREATED IN JUN-2003 AND 2004
     Dates: start: 20020101
  8. LOPINAVIR [Suspect]
     Indication: HIV INFECTION
     Dates: start: 20030601
  9. RITONAVIR [Suspect]
     Indication: HIV INFECTION
     Dosage: ALSO IN 2004
     Dates: start: 20030601

REACTIONS (19)
  - ALANINE AMINOTRANSFERASE [None]
  - ASCITES [None]
  - ASPARTATE AMINOTRANSFERASE INCREASED [None]
  - BLOOD ALKALINE PHOSPHATASE INCREASED [None]
  - BLOOD BILIRUBIN INCREASED [None]
  - DRUG INTERACTION [None]
  - FACTOR II MUTATION [None]
  - GENERAL PHYSICAL HEALTH DETERIORATION [None]
  - LIVER DISORDER [None]
  - LIVER TRANSPLANT [None]
  - NODULAR REGENERATIVE HYPERPLASIA [None]
  - PERITONEAL INFECTION [None]
  - PORTAL HYPERTENSION [None]
  - PORTAL HYPERTENSIVE GASTROPATHY [None]
  - PORTAL VEIN THROMBOSIS [None]
  - PROTEIN S DEFICIENCY [None]
  - SPLENOMEGALY [None]
  - VARICES OESOPHAGEAL [None]
  - WHITE BLOOD CELL COUNT DECREASED [None]
